FAERS Safety Report 8886407 (Version 1)
Quarter: 2012Q4

REPORT INFORMATION
  Report Type: 
  Country: US (occurrence: US)
  Receive Date: 20121105
  Receipt Date: 20121105
  Transmission Date: 20130627
  Serious: Yes (Hospitalization)
  Sender: FDA-Public Use
  Company Number: US-GLAXOSMITHKLINE-A0999659A

PATIENT
  Age: 34 Year
  Sex: Male

DRUGS (3)
  1. LAMICTAL [Suspect]
     Route: 048
     Dates: start: 20081231
  2. TREXIMET [Suspect]
     Dates: start: 20081231
  3. IMITREX [Suspect]
     Dates: start: 20081231

REACTIONS (1)
  - Gun shot wound [Recovering/Resolving]
